FAERS Safety Report 9571450 (Version 1)
Quarter: 2013Q1

REPORT INFORMATION
  Report Type: Spontaneous
  Country: US (occurrence: None)
  Receive Date: 20120709
  Receipt Date: 20120709
  Transmission Date: 20140127
  Serious: Yes (Disabling)
  Sender: FDA-Public Use
  Company Number: PHEH2011US06331

PATIENT
  Age: 55 Year
  Sex: Female

DRUGS (1)
  1. GLEEVEC (IMATINIB) UNKNOWN [Suspect]
     Indication: SOFT TISSUE CANCER
     Dosage: 400 MG, QD, ORAL
     Route: 048
     Dates: start: 20071010

REACTIONS (2)
  - Deafness [None]
  - Periorbital oedema [None]
